FAERS Safety Report 24877923 (Version 1)
Quarter: 2025Q1

REPORT INFORMATION
  Report Type: Spontaneous
  Country: ES (occurrence: ES)
  Receive Date: 20250123
  Receipt Date: 20250123
  Transmission Date: 20250409
  Serious: Yes (Hospitalization, Other)
  Sender: RANBAXY
  Company Number: ES-SANOFI-AVENTIS-2013SA075625

PATIENT
  Age: 68 Year
  Sex: Female
  Weight: 75 kg

DRUGS (20)
  1. CIPROFLOXACIN [Suspect]
     Active Substance: CIPROFLOXACIN
     Indication: Product used for unknown indication
     Dosage: || DOSE UNIT FREQUENCY: 500 MG-MILLIGRAMS || DOSE PER DOSE: 500 MG-MILLIGRAMS || NO. OF SOCKETS PER
     Route: 065
     Dates: end: 20130710
  2. CIPROFLOXACIN [Suspect]
     Active Substance: CIPROFLOXACIN
     Route: 065
     Dates: start: 20130712
  3. METFORMIN [Suspect]
     Active Substance: METFORMIN HYDROCHLORIDE
     Indication: Diabetes mellitus
     Dosage: || DOSE UNIT FREQUENCY: 850 MG-MILLIGRAMS || DOSE PER DOSE: 850 MG-MILLIGRAMS || NO. OF SOCKETS PER
     Route: 065
     Dates: start: 201211, end: 201310
  4. FOSFOMYCIN [Suspect]
     Active Substance: FOSFOMYCIN
     Indication: Product used for unknown indication
     Dosage: || DOSE UNIT FREQUENCY: 1 G-GRAMS || DOSE PER DOSE: 1 G-GRAMS || NO. OF SOCKETS PER FREQUENCY UNIT:
     Route: 065
     Dates: start: 20130704, end: 20130705
  5. TAXOTERE [Suspect]
     Active Substance: DOCETAXEL
     Indication: Chemotherapy
     Route: 065
     Dates: start: 20130701
  6. CARBOPLATIN [Suspect]
     Active Substance: CARBOPLATIN
     Indication: Chemotherapy
     Dosage: || DOSIS UNIDAD FRECUENCIA: 840 MG-MILIGRAMOS || DOSIS POR TOMA: 840 MG-MILIGRAMOS || N? TOMAS POR U
     Route: 065
     Dates: start: 20130701, end: 20130729
  7. CARBOPLATIN [Suspect]
     Active Substance: CARBOPLATIN
     Route: 065
     Dates: end: 20130819
  8. SIMVASTATIN [Concomitant]
     Active Substance: SIMVASTATIN
     Indication: Product used for unknown indication
     Route: 065
     Dates: start: 201211
  9. PANTOPRAZOLE SODIUM [Concomitant]
     Active Substance: PANTOPRAZOLE SODIUM
     Indication: Product used for unknown indication
     Route: 065
     Dates: start: 201211
  10. AMOXICILLIN\CLAVULANIC ACID [Concomitant]
     Active Substance: AMOXICILLIN\CLAVULANIC ACID
     Indication: Product used for unknown indication
     Dosage: || DOSE UNIT FREQUENCY: 37.5 MG-MILLIGRAMS || DOSE PER DOSE: 37.5 MG-MILLIGRAMS || NO. OF SOCKETS PE
     Route: 065
     Dates: start: 20130703, end: 20130704
  11. ACETAMINOPHEN [Concomitant]
     Active Substance: ACETAMINOPHEN
     Indication: Product used for unknown indication
     Route: 065
     Dates: start: 201211
  12. FERROUS SULFATE ANHYDROUS [Concomitant]
     Active Substance: FERROUS SULFATE ANHYDROUS
     Indication: Product used for unknown indication
     Route: 065
     Dates: start: 20130729, end: 20130730
  13. NEUPOGEN [Concomitant]
     Active Substance: FILGRASTIM
     Indication: Product used for unknown indication
     Route: 065
     Dates: end: 20130824
  14. NEUPOGEN [Concomitant]
     Active Substance: FILGRASTIM
     Route: 065
     Dates: start: 20130805, end: 20130807
  15. NEUPOGEN [Concomitant]
     Active Substance: FILGRASTIM
     Route: 065
     Dates: start: 20130819, end: 20130820
  16. DOMPERIDONE [Concomitant]
     Active Substance: DOMPERIDONE
     Indication: Product used for unknown indication
     Route: 065
  17. RANITIDINE HYDROCHLORIDE [Concomitant]
     Active Substance: RANITIDINE HYDROCHLORIDE
     Indication: Product used for unknown indication
     Route: 040
     Dates: start: 201211
  18. TRASTUZUMAB [Concomitant]
     Active Substance: TRASTUZUMAB
     Indication: Breast cancer
     Route: 058
     Dates: start: 20130701, end: 20130722
  19. TRASTUZUMAB [Concomitant]
     Active Substance: TRASTUZUMAB
     Route: 058
     Dates: start: 20130729, end: 20131001
  20. TRASTUZUMAB [Concomitant]
     Active Substance: TRASTUZUMAB
     Route: 058
     Dates: start: 20131022

REACTIONS (3)
  - Blood creatinine decreased [Unknown]
  - Diarrhoea [Recovered/Resolved]
  - Acute kidney injury [Recovered/Resolved]

NARRATIVE: CASE EVENT DATE: 20130921
